FAERS Safety Report 14558038 (Version 2)
Quarter: 2023Q4

REPORT INFORMATION
  Report Type: Report from Study
  Country: ES (occurrence: ES)
  Receive Date: 20180221
  Receipt Date: 20231231
  Transmission Date: 20240110
  Serious: Yes (Hospitalization)
  Sender: FDA-Public Use
  Company Number: None

PATIENT
  Age: 91 Year

DRUGS (9)
  1. TORSEMIDE [Suspect]
     Active Substance: TORSEMIDE
     Indication: Product used for unknown indication
     Dosage: DOSAGE TEXT: 1-0-0
     Route: 048
     Dates: start: 20150601
  2. SINTROM [Concomitant]
     Active Substance: ACENOCOUMAROL
     Indication: Atrial fibrillation
     Dosage: SP
     Route: 048
     Dates: start: 20150601
  3. OMEPRAZOLE [Concomitant]
     Active Substance: OMEPRAZOLE
     Indication: Prophylaxis against gastrointestinal ulcer
     Dosage: DOSAGE TEXT: 1 CP
     Route: 048
     Dates: start: 20150601
  4. AVIDART 0,5 mg CAPSULAS BLANDAS , 30 c?psulas [Concomitant]
     Indication: Benign prostatic hyperplasia
     Dosage: DOSAGE TEXT: 1-0-0
     Route: 048
     Dates: start: 20070101
  5. ENALAPRIL [Suspect]
     Active Substance: ENALAPRIL
     Indication: Product used for unknown indication
     Dosage: DOSAGE TEXT: 1-0-0
     Route: 048
     Dates: start: 19930101, end: 20170413
  6. ATORVASTATINA FARMALTER 10 MG COMPRIMIDOS RECUBIERTOS CON PELICULA EFG [Concomitant]
     Indication: Dyslipidaemia
     Dosage: 0-0-1
     Route: 048
     Dates: start: 19930101
  7. THERVAN 10 [Concomitant]
     Indication: Dyslipidaemia
     Dosage: DOSAGE TEXT: 0-0-1
     Route: 048
     Dates: start: 19930101
  8. ALDACTONE [Suspect]
     Active Substance: SPIRONOLACTONE
     Indication: Product used for unknown indication
     Dosage: DOSAGE TEXT: 1-0-0
     Route: 048
     Dates: start: 20150601, end: 20170413
  9. ENALAPRIL [Suspect]
     Active Substance: ENALAPRIL

REACTIONS (2)
  - Acute kidney injury [Recovered/Resolved]
  - Hyperkalaemia [Recovered/Resolved]

NARRATIVE: CASE EVENT DATE: 20170412
